FAERS Safety Report 16503842 (Version 2)
Quarter: 2019Q3

REPORT INFORMATION
  Report Type: Spontaneous
  Country: US (occurrence: US)
  Receive Date: 20190701
  Receipt Date: 20190715
  Transmission Date: 20191004
  Serious: Yes (Other)
  Sender: FDA-Public Use
  Company Number: US-PFIZER INC-2019278369

PATIENT
  Age: 84 Year
  Sex: Female
  Weight: 66 kg

DRUGS (1)
  1. IBRANCE [Suspect]
     Active Substance: PALBOCICLIB
     Indication: BREAST CANCER METASTATIC
     Dosage: 100 MG, CYCLIC, [DAY 1-21 (Q) EVERY 28 DAY]
     Route: 048
     Dates: start: 20190615

REACTIONS (2)
  - Cancer pain [Unknown]
  - Insomnia [Unknown]

NARRATIVE: CASE EVENT DATE: 2019
